FAERS Safety Report 8362289 (Version 2)
Quarter: 2015Q1

REPORT INFORMATION
  Report Type: Report from Study
  Country: US (occurrence: US)
  Receive Date: 20120130
  Receipt Date: 20150305
  Transmission Date: 20150721
  Serious: Yes (Death, Other)
  Sender: FDA-Public Use
  Company Number: US-ROCHE-1034042

PATIENT
  Sex: Female

DRUGS (19)
  1. BAG BALM [Concomitant]
     Dosage: 2-3
     Route: 065
  2. ATENOLOL. [Concomitant]
     Active Substance: ATENOLOL
     Route: 048
  3. IRON SULPHATE [Suspect]
     Active Substance: FERROUS SULFATE ANHYDROUS
     Indication: PRODUCT USED FOR UNKNOWN INDICATION
     Route: 048
  4. VITAMIN C [Concomitant]
     Active Substance: ASCORBIC ACID
     Route: 048
  5. LISINOPRIL. [Concomitant]
     Active Substance: LISINOPRIL
     Route: 048
  6. XELODA [Suspect]
     Active Substance: CAPECITABINE
     Indication: SMALL INTESTINE CARCINOMA
     Route: 048
  7. OXYBUTYN [Concomitant]
     Route: 048
  8. ATIVAN [Concomitant]
     Active Substance: LORAZEPAM
     Route: 065
  9. VITAMIN B6 [Concomitant]
     Active Substance: PYRIDOXINE HYDROCHLORIDE
  10. AVASTIN [Suspect]
     Active Substance: BEVACIZUMAB
     Indication: SMALL INTESTINE CARCINOMA
     Route: 042
     Dates: start: 200503
  11. OXYCODONE [Concomitant]
     Active Substance: OXYCODONE
     Dosage: 5-10 MG
     Route: 065
  12. 5-FLUOROURACIL [Suspect]
     Active Substance: FLUOROURACIL
     Indication: PRODUCT USED FOR UNKNOWN INDICATION
     Route: 065
  13. LOTREL [Concomitant]
     Active Substance: AMLODIPINE BESYLATE\BENAZEPRIL HYDROCHLORIDE
     Route: 048
  14. HCTZ [Concomitant]
     Active Substance: HYDROCHLOROTHIAZIDE
     Route: 048
  15. OXALIPLATIN. [Suspect]
     Active Substance: OXALIPLATIN
     Indication: PRODUCT USED FOR UNKNOWN INDICATION
     Route: 065
  16. ZANTAC [Concomitant]
     Active Substance: RANITIDINE HYDROCHLORIDE
     Route: 048
  17. ARANESP [Concomitant]
     Active Substance: DARBEPOETIN ALFA
  18. MAGNESIUM OXIDE. [Concomitant]
     Active Substance: MAGNESIUM OXIDE
     Route: 048
  19. NEULASTA [Suspect]
     Active Substance: PEGFILGRASTIM
     Indication: PRODUCT USED FOR UNKNOWN INDICATION
     Route: 065

REACTIONS (32)
  - Hypoaesthesia [Unknown]
  - Headache [Unknown]
  - Skin irritation [Unknown]
  - Tongue discolouration [Unknown]
  - Paraesthesia [Unknown]
  - Microcytic anaemia [Unknown]
  - Fatigue [Unknown]
  - Catheter site pain [Unknown]
  - Skin fissures [Unknown]
  - Temperature intolerance [Unknown]
  - Skin discolouration [Unknown]
  - Death [Fatal]
  - Disease progression [Unknown]
  - Erythema [Unknown]
  - Haematoma [Unknown]
  - Gastrointestinal disorder [Unknown]
  - Neuropathy peripheral [Recovered/Resolved]
  - Blister [Recovered/Resolved]
  - Faeces discoloured [Unknown]
  - Abdominal pain [Recovering/Resolving]
  - Flank pain [Unknown]
  - Abdominal symptom [Unknown]
  - Haematocrit increased [Unknown]
  - Tenderness [Unknown]
  - Lymphadenopathy [Unknown]
  - Constipation [Unknown]
  - Musculoskeletal chest pain [Unknown]
  - Bone pain [Unknown]
  - Blood pressure increased [Unknown]
  - Allodynia [Unknown]
  - Hepatic lesion [Unknown]
  - Chest discomfort [None]
